FAERS Safety Report 6070740-X (Version None)
Quarter: 2009Q1

REPORT INFORMATION
  Report Type: 
  Country: None (occurrence: None)
  Receive Date: 20090209
  Receipt Date: 20090127
  Transmission Date: 20090719
  Serious: Yes (Disabling)
  Sender: FDA-Public Use
  Company Number: CL-ROCHE-611445

PATIENT
  Age: 42 Year
  Sex: Male
  Weight: 90 kg

DRUGS (3)
  1. ROACNETAN [Suspect]
     Indication: FOLLICULITIS
     Dosage: DOSAGE REGIMEN REPORTED: 20 MG/DAY.
     Route: 048
     Dates: start: 20080901, end: 20081201
  2. ROACNETAN [Suspect]
     Dosage: DOSAGE REGIMEN REPORTED: 30 MG/DAY.
     Route: 048
     Dates: start: 20081201, end: 20090101
  3. ROACNETAN [Suspect]
     Dosage: DOSAGE REGIMEN REPORTED: 20 MG/DAY
     Route: 048
     Dates: start: 20090101, end: 20090115

REACTIONS (8)
  - ANKLE FRACTURE [None]
  - BLOOD CHOLESTEROL INCREASED [None]
  - BLOOD CREATINE PHOSPHOKINASE INCREASED [None]
  - BLOOD TRIGLYCERIDES INCREASED [None]
  - DYSARTHRIA [None]
  - HEADACHE [None]
  - OCULAR HYPERAEMIA [None]
  - SWELLING FACE [None]
